FAERS Safety Report 4757005-0 (Version None)
Quarter: 2005Q3

REPORT INFORMATION
  Report Type: 
  Country: None (occurrence: None)
  Receive Date: 20050823
  Receipt Date: 20050810
  Transmission Date: 20060218
  Serious: Yes (Hospitalization)
  Sender: FDA-Public Use
  Company Number: 2005BH001052

PATIENT
  Sex: Male

DRUGS (1)
  1. DIANEAL PD2, AMBUL-FLEX CONTAINER [Suspect]
     Dosage: IP
     Route: 033

REACTIONS (6)
  - CONSTIPATION [None]
  - DEHYDRATION [None]
  - DIFFICULTY IN WALKING [None]
  - FEELING ABNORMAL [None]
  - HYPERVOLAEMIA [None]
  - MEDICAL DEVICE COMPLICATION [None]
